FAERS Safety Report 25127594 (Version 1)
Quarter: 2025Q1

REPORT INFORMATION
  Report Type: Spontaneous
  Country: MY (occurrence: MY)
  Receive Date: 20250327
  Receipt Date: 20250327
  Transmission Date: 20250408
  Serious: No
  Sender: ALKEM
  Company Number: None

PATIENT
  Age: 23 Year
  Sex: Male
  Weight: 71 kg

DRUGS (1)
  1. QUETIAPINE FUMARATE [Suspect]
     Active Substance: QUETIAPINE FUMARATE
     Indication: Hallucinations, mixed
     Route: 065

REACTIONS (2)
  - Hyperphagia [Recovered/Resolved]
  - Condition aggravated [Recovered/Resolved]
